FAERS Safety Report 9613312 (Version 1)
Quarter: 2013Q4

REPORT INFORMATION
  Report Type: Spontaneous
  Country: GB (occurrence: GB)
  Receive Date: 20131010
  Receipt Date: 20131010
  Transmission Date: 20140711
  Serious: Yes (Other)
  Sender: FDA-Public Use
  Company Number: GB-BRISTOL-MYERS SQUIBB COMPANY-19463157

PATIENT
  Age: 51 Year
  Sex: Female
  Weight: 98 kg

DRUGS (14)
  1. ORENCIA [Suspect]
     Indication: RHEUMATOID ARTHRITIS
     Route: 042
     Dates: start: 20130516, end: 20130905
  2. PREDNISOLONE [Concomitant]
  3. CODEINE PHOSPHATE [Concomitant]
  4. TOCILIZUMAB [Concomitant]
  5. AMITRIPTYLINE [Concomitant]
  6. PREGABALIN [Concomitant]
  7. ASPIRIN [Concomitant]
  8. NICORANDIL [Concomitant]
  9. ZOMORPH [Concomitant]
  10. ADCAL-D3 [Concomitant]
  11. ATENOLOL [Concomitant]
  12. LANSOPRAZOLE [Concomitant]
  13. SIMVASTATIN [Concomitant]
  14. DIAZEPAM [Concomitant]

REACTIONS (2)
  - Paraesthesia oral [Unknown]
  - Paraesthesia [Not Recovered/Not Resolved]
